FAERS Safety Report 9790014 (Version 1)
Quarter: 2013Q4

REPORT INFORMATION
  Report Type: Spontaneous
  Country: US (occurrence: None)
  Receive Date: 20131230
  Receipt Date: 20131230
  Transmission Date: 20140711
  Serious: Yes (Other)
  Sender: FDA-Public Use
  Company Number: None

PATIENT
  Age: 33 Year
  Sex: Female
  Weight: 56.7 kg

DRUGS (1)
  1. MIRVASO [Suspect]
     Indication: ERYTHEMA
     Dosage: APPLIED TO A SURFACE, USUALLY THE SKIN
     Dates: start: 20131224, end: 20131227

REACTIONS (3)
  - Application site erythema [None]
  - Application site inflammation [None]
  - Application site pain [None]
